FAERS Safety Report 8539685-7 (Version None)
Quarter: 2012Q3

REPORT INFORMATION
  Report Type: 
  Country: None (occurrence: None)
  Receive Date: 20120726
  Receipt Date: 20120224
  Transmission Date: 20120928
  Serious: No
  Sender: FDA-Public Use
  Company Number: US-ASTRAZENECA-2009SE22084

PATIENT
  Age: 31 Year
  Sex: Female
  Weight: 163.3 kg

DRUGS (25)
  1. SEROQUEL [Suspect]
     Indication: MENTAL DISORDER
     Route: 048
     Dates: start: 20040601, end: 20061001
  2. ABILIFY [Concomitant]
     Dosage: 10 MG FOR ONE MONTH
     Route: 048
     Dates: start: 20060601
  3. ZOLOFT [Concomitant]
     Route: 048
     Dates: start: 20070418
  4. IBUPROFEN [Concomitant]
     Dosage: 2 TABS PRN
     Route: 048
     Dates: start: 20070418
  5. ASPIRIN [Concomitant]
     Dosage: ENTERIC COATED TABLETS
     Dates: start: 20050402
  6. METOPROLOL TARTRAT [Concomitant]
     Dates: start: 20050403
  7. ABILIFY [Concomitant]
     Dates: start: 20050403
  8. SEROQUEL [Suspect]
     Route: 048
     Dates: start: 20070418
  9. DARVOCET [Concomitant]
     Dosage: 2 TABS PRN
     Route: 048
     Dates: start: 20070418
  10. NIFEREX [Concomitant]
     Dates: start: 20071224
  11. ADVAIR DISKUS 100/50 [Concomitant]
     Dosage: 250/50 BID
     Dates: start: 20071224
  12. SEROQUEL [Suspect]
     Route: 048
     Dates: start: 20050403
  13. GEODON [Concomitant]
     Dates: start: 20070418
  14. CYMBALTA [Concomitant]
     Route: 048
     Dates: start: 20060101
  15. THORAZINE [Concomitant]
     Route: 048
     Dates: start: 20060101
  16. SEROQUEL [Suspect]
     Route: 048
     Dates: start: 20070418
  17. GEODON [Concomitant]
     Route: 048
     Dates: start: 20060101
  18. CALAN [Concomitant]
     Dates: start: 20070418
  19. SEROQUEL [Suspect]
     Indication: SLEEP DISORDER
     Route: 048
     Dates: start: 20040601, end: 20061001
  20. SEROQUEL [Suspect]
     Route: 048
     Dates: start: 20050403
  21. NITROGLYCERIN [Concomitant]
     Dosage: 0.4 MG PRN
     Route: 048
     Dates: start: 20071224
  22. WELLBUTRIN XL [Concomitant]
     Route: 048
     Dates: start: 20070418
  23. ASPIRIN [Concomitant]
     Dates: start: 20050402
  24. ACETAMINOPHEN [Concomitant]
     Dates: start: 20050403
  25. PERCOCET [Concomitant]
     Dosage: 5/325 TWO TABLETS EVERY 4 HOUR AND PRN

REACTIONS (9)
  - OBESITY [None]
  - JOINT INJURY [None]
  - ENTHESOPATHY [None]
  - HYPERLIPIDAEMIA [None]
  - TYPE 2 DIABETES MELLITUS [None]
  - DIABETES MELLITUS INADEQUATE CONTROL [None]
  - OVERWEIGHT [None]
  - BACK PAIN [None]
  - BLOOD CHOLESTEROL INCREASED [None]
